FAERS Safety Report 19702346 (Version 7)
Quarter: 2023Q2

REPORT INFORMATION
  Report Type: Report from Study
  Country: CA (occurrence: CA)
  Receive Date: 20210814
  Receipt Date: 20230505
  Transmission Date: 20230722
  Serious: Yes (Other)
  Sender: FDA-Public Use
  Company Number: PHHY2018CA035797

PATIENT
  Age: 41 Year
  Sex: Female

DRUGS (38)
  1. XOLAIR [Suspect]
     Active Substance: OMALIZUMAB
     Indication: Asthma
     Dosage: 375 MG, BIW
     Route: 058
     Dates: start: 20180227
  2. XOLAIR [Suspect]
     Active Substance: OMALIZUMAB
     Dosage: UNK
     Route: 058
     Dates: start: 20180327
  3. XOLAIR [Suspect]
     Active Substance: OMALIZUMAB
     Dosage: 375 MG, BIW
     Route: 058
     Dates: start: 20180410
  4. XOLAIR [Suspect]
     Active Substance: OMALIZUMAB
     Dosage: 375 MG, BIW
     Route: 058
     Dates: start: 20180410
  5. XOLAIR [Suspect]
     Active Substance: OMALIZUMAB
     Dosage: 375 MG, BIW
     Route: 058
     Dates: start: 20180508
  6. XOLAIR [Suspect]
     Active Substance: OMALIZUMAB
     Dosage: 375 MG, BIW
     Route: 058
     Dates: start: 20180508
  7. XOLAIR [Suspect]
     Active Substance: OMALIZUMAB
     Dosage: 375 MG, BIW
     Route: 058
     Dates: start: 20180605
  8. XOLAIR [Suspect]
     Active Substance: OMALIZUMAB
     Dosage: 375 MG, BIW
     Route: 058
     Dates: start: 20180925
  9. XOLAIR [Suspect]
     Active Substance: OMALIZUMAB
     Dosage: 375 MG, BIW
     Route: 058
     Dates: start: 20181023
  10. XOLAIR [Suspect]
     Active Substance: OMALIZUMAB
     Dosage: 375 MG, BIW
     Route: 058
     Dates: start: 20181120
  11. XOLAIR [Suspect]
     Active Substance: OMALIZUMAB
     Dosage: 375 MG, BIW
     Route: 058
     Dates: start: 20181218
  12. XOLAIR [Suspect]
     Active Substance: OMALIZUMAB
     Dosage: 375 MG, BIW
     Route: 058
     Dates: start: 20190122
  13. XOLAIR [Suspect]
     Active Substance: OMALIZUMAB
     Dosage: 375 MG, BIW
     Route: 058
     Dates: start: 20190402
  14. XOLAIR [Suspect]
     Active Substance: OMALIZUMAB
     Dosage: 375 MG, BIW
     Route: 058
     Dates: start: 20190430
  15. XOLAIR [Suspect]
     Active Substance: OMALIZUMAB
     Dosage: 375 MG, BIW
     Route: 058
     Dates: start: 20190612
  16. XOLAIR [Suspect]
     Active Substance: OMALIZUMAB
     Dosage: 375MG, BIW
     Route: 058
     Dates: start: 20190613
  17. XOLAIR [Suspect]
     Active Substance: OMALIZUMAB
     Dosage: 375MG, BIW
     Route: 058
     Dates: start: 20190910
  18. XOLAIR [Suspect]
     Active Substance: OMALIZUMAB
     Dosage: 375MG, BIW
     Route: 058
     Dates: start: 20190924
  19. XOLAIR [Suspect]
     Active Substance: OMALIZUMAB
     Dosage: 375 MG, BIW
     Route: 058
     Dates: start: 20191203
  20. XOLAIR [Suspect]
     Active Substance: OMALIZUMAB
     Dosage: 375 MG, BIW
     Route: 065
     Dates: start: 20191217
  21. XOLAIR [Suspect]
     Active Substance: OMALIZUMAB
     Dosage: 375 MG, BIW
     Route: 058
     Dates: start: 20211021
  22. XOLAIR [Suspect]
     Active Substance: OMALIZUMAB
     Dosage: 375 MG, BIW
     Route: 058
  23. CIPROFLOXACIN [Suspect]
     Active Substance: CIPROFLOXACIN
     Indication: Product used for unknown indication
     Dosage: UNK
     Route: 065
  24. CETAPHIL DAILY FACIAL MOISTURIZER WITH SUNCREEN SPF 50 [Suspect]
     Active Substance: OCTINOXATE\OCTISALATE\OCTOCRYLENE\OXYBENZONE\TITANIUM DIOXIDE
     Indication: Product used for unknown indication
     Dosage: UNK
     Route: 065
  25. PREDNISONE [Suspect]
     Active Substance: PREDNISONE
     Indication: Asthma
     Dosage: 50 MG, PRN, FOR 8 MONTHS
     Route: 048
     Dates: start: 2010
  26. PREDNISONE [Suspect]
     Active Substance: PREDNISONE
     Indication: Pruritus
     Dosage: 30 MG, QD (FOR 3 DAYS)
     Route: 048
     Dates: start: 201803
  27. PREDNISONE [Suspect]
     Active Substance: PREDNISONE
     Indication: Rash
     Dosage: 50 MG, QD (1 TABLET )
     Route: 048
     Dates: start: 20190515, end: 20190519
  28. PREDNISONE [Suspect]
     Active Substance: PREDNISONE
     Indication: Chest pain
     Dosage: 50 MG, QD
     Route: 065
     Dates: start: 20190612
  29. PREDNISONE [Suspect]
     Active Substance: PREDNISONE
     Dosage: UNK
     Route: 065
     Dates: start: 20190924
  30. PREDNISONE [Suspect]
     Active Substance: PREDNISONE
     Dosage: 50 MG, QD (FOR 8 MONTHS)
     Route: 065
  31. VENTOLIN [Concomitant]
     Active Substance: ALBUTEROL SULFATE
     Indication: Product used for unknown indication
     Dosage: 2 DOSAGE FORM, PRN
     Dates: start: 1980
  32. VENTOLIN [Concomitant]
     Active Substance: ALBUTEROL SULFATE
     Dosage: UNK, 6 PUFFS PER DAY
  33. VENTOLIN [Concomitant]
     Active Substance: ALBUTEROL SULFATE
     Dosage: UNK, 1 PUFF PER DAY
  34. SPIRIVA [Concomitant]
     Active Substance: TIOTROPIUM BROMIDE MONOHYDRATE
     Indication: Product used for unknown indication
     Dosage: 2 DOSAGE FORM, QD
     Dates: start: 2017, end: 2020
  35. ZYRTEC [Concomitant]
     Active Substance: CETIRIZINE HYDROCHLORIDE
     Indication: Product used for unknown indication
     Dosage: UNK
     Route: 065
  36. SINGULAIR [Concomitant]
     Active Substance: MONTELUKAST SODIUM
     Indication: Product used for unknown indication
     Dosage: 1 DOSAGE FORM, QD
     Route: 048
     Dates: start: 2017, end: 2021
  37. SYMBICORT [Concomitant]
     Active Substance: BUDESONIDE\FORMOTEROL FUMARATE DIHYDRATE
     Indication: Product used for unknown indication
     Dosage: 2 DOSAGE FORM, BID
     Dates: start: 2017
  38. SYMBICORT [Concomitant]
     Active Substance: BUDESONIDE\FORMOTEROL FUMARATE DIHYDRATE
     Dosage: UNK UNK, QD (2 PUFFS)
     Dates: start: 20221103

REACTIONS (43)
  - Renal impairment [Unknown]
  - Pharyngitis streptococcal [Unknown]
  - Pain [Unknown]
  - Pyrexia [Unknown]
  - Swelling [Unknown]
  - Oropharyngeal pain [Unknown]
  - Haemoptysis [Unknown]
  - Skin lesion [Unknown]
  - Oral herpes [Unknown]
  - Eczema [Recovering/Resolving]
  - Chest discomfort [Unknown]
  - Inflammation [Unknown]
  - Enterobiasis [Recovering/Resolving]
  - Hypertension [Recovering/Resolving]
  - Cystitis [Recovered/Resolved]
  - Chest pain [Recovering/Resolving]
  - Sensitivity to weather change [Unknown]
  - Heart rate increased [Recovering/Resolving]
  - Dyspnoea [Recovering/Resolving]
  - Urinary tract infection [Recovering/Resolving]
  - Seasonal allergy [Unknown]
  - Dust allergy [Unknown]
  - Forced expiratory volume decreased [Unknown]
  - Perfume sensitivity [Unknown]
  - Obstructive airways disorder [Unknown]
  - Upper respiratory tract infection [Recovering/Resolving]
  - Respiratory disorder [Recovering/Resolving]
  - Pollakiuria [Recovering/Resolving]
  - Arthralgia [Recovered/Resolved]
  - Alopecia [Unknown]
  - Dysuria [Recovering/Resolving]
  - Blood glucose increased [Recovering/Resolving]
  - Injection site eczema [Unknown]
  - COVID-19 [Unknown]
  - Middle insomnia [Unknown]
  - Rash [Recovering/Resolving]
  - Fatigue [Recovered/Resolved]
  - Headache [Recovered/Resolved]
  - Hypoaesthesia [Unknown]
  - Pruritus [Unknown]
  - Asthma [Recovering/Resolving]
  - Drug hypersensitivity [Unknown]
  - Product availability issue [Unknown]

NARRATIVE: CASE EVENT DATE: 20180227
